FAERS Safety Report 20885245 (Version 1)
Quarter: 2022Q2

REPORT INFORMATION
  Report Type: Spontaneous
  Country: EC (occurrence: EC)
  Receive Date: 20220527
  Receipt Date: 20220527
  Transmission Date: 20220720
  Serious: Yes (Other)
  Sender: FDA-Public Use
  Company Number: EC-COLLEGIUM PHARMACEUTICAL, INC.-2022CGM00341

PATIENT
  Age: 18 Year
  Sex: Male

DRUGS (2)
  1. TAPENTADOL [Suspect]
     Active Substance: TAPENTADOL
     Indication: Procedural pain
     Dosage: 50 MG, 1X/DAY
  2. CYCLOBENZAPRINE HYDROCHLORIDE [Suspect]
     Active Substance: CYCLOBENZAPRINE HYDROCHLORIDE
     Indication: Procedural pain

REACTIONS (1)
  - Seizure [Recovered/Resolved]
